FAERS Safety Report 6977240-0 (Version None)
Quarter: 2010Q3

REPORT INFORMATION
  Report Type: 
  Country: None (occurrence: None)
  Receive Date: 20100910
  Receipt Date: 20100730
  Transmission Date: 20110219
  Serious: Yes (Death, Other)
  Sender: FDA-Public Use
  Company Number: US-BAXTER-2010BH005206

PATIENT
  Age: 75 Year
  Sex: Female
  Weight: 104 kg

DRUGS (23)
  1. HEPARIN SODIUM INJECTION [Suspect]
     Indication: PROPHYLAXIS
     Route: 058
     Dates: start: 20070803, end: 20070807
  2. HEPARIN SODIUM INJECTION [Suspect]
     Indication: MITRAL VALVE REPLACEMENT
     Route: 058
     Dates: start: 20070803, end: 20070807
  3. HEPARIN SODIUM INJECTION [Suspect]
     Route: 040
     Dates: start: 20070809
  4. HEPARIN SODIUM INJECTION [Suspect]
     Route: 040
     Dates: start: 20070809
  5. HEPARIN SODIUM INJECTION [Suspect]
     Route: 065
     Dates: start: 20070809
  6. HEPARIN SODIUM INJECTION [Suspect]
     Route: 065
     Dates: start: 20070809
  7. HEPARIN SODIUM INJECTION [Suspect]
     Route: 040
     Dates: start: 20070809
  8. HEPARIN SODIUM INJECTION [Suspect]
     Route: 040
     Dates: start: 20070809
  9. HEPARIN SODIUM INJECTION [Suspect]
     Route: 040
     Dates: start: 20070809
  10. HEPARIN SODIUM INJECTION [Suspect]
     Route: 040
     Dates: start: 20070809
  11. SIMVASTATIN [Concomitant]
     Indication: PRODUCT USED FOR UNKNOWN INDICATION
     Route: 048
  12. FOLIC ACID [Concomitant]
     Indication: PRODUCT USED FOR UNKNOWN INDICATION
     Route: 048
  13. HYDROCHLOROTHIAZIDE [Concomitant]
     Indication: PRODUCT USED FOR UNKNOWN INDICATION
     Route: 048
  14. GLYBURIDE [Concomitant]
     Indication: PRODUCT USED FOR UNKNOWN INDICATION
     Route: 048
  15. LASIX [Concomitant]
     Indication: PRODUCT USED FOR UNKNOWN INDICATION
     Route: 048
  16. ALLOPURINOL [Concomitant]
     Indication: PRODUCT USED FOR UNKNOWN INDICATION
     Route: 048
  17. BENICAR [Concomitant]
     Indication: PRODUCT USED FOR UNKNOWN INDICATION
     Route: 048
  18. VOLTAREN [Concomitant]
     Indication: PRODUCT USED FOR UNKNOWN INDICATION
     Route: 048
  19. ACTONEL [Concomitant]
     Indication: PRODUCT USED FOR UNKNOWN INDICATION
     Route: 048
  20. DIGOXIN [Concomitant]
     Indication: PRODUCT USED FOR UNKNOWN INDICATION
     Route: 065
  21. ASPIRIN [Concomitant]
     Indication: PRODUCT USED FOR UNKNOWN INDICATION
     Route: 048
  22. LISINOPRIL AND HYDROCHLOROTHIAZIDE [Concomitant]
     Indication: PRODUCT USED FOR UNKNOWN INDICATION
     Route: 048
  23. PATANOL [Concomitant]
     Indication: PRODUCT USED FOR UNKNOWN INDICATION
     Route: 047

REACTIONS (7)
  - ATRIAL RUPTURE [None]
  - CARDIAC FAILURE [None]
  - HAEMORRHAGE [None]
  - MITRAL VALVE INCOMPETENCE [None]
  - MITRAL VALVE PROLAPSE [None]
  - PROCEDURAL COMPLICATION [None]
  - VENTRICLE RUPTURE [None]
